FAERS Safety Report 23262461 (Version 1)
Quarter: 2023Q4

REPORT INFORMATION
  Report Type: Report from Study
  Country: CA (occurrence: CA)
  Receive Date: 20231205
  Receipt Date: 20231205
  Transmission Date: 20240110
  Serious: Yes (Other)
  Sender: FDA-Public Use
  Company Number: CA-MYLANLABS-2023M1128805

PATIENT

DRUGS (1)
  1. HULIO [Suspect]
     Active Substance: ADALIMUMAB-FKJP
     Indication: Ankylosing spondylitis
     Dosage: 40 MILLIGRAM, BIWEEKLY
     Route: 058
     Dates: start: 20230606

REACTIONS (7)
  - Rash [Not Recovered/Not Resolved]
  - Urticaria [Unknown]
  - Ocular hyperaemia [Not Recovered/Not Resolved]
  - Eye discharge [Not Recovered/Not Resolved]
  - Fatigue [Unknown]
  - Eczema [Not Recovered/Not Resolved]
  - Insomnia [Unknown]
